FAERS Safety Report 21861643 (Version 1)
Quarter: 2023Q1

REPORT INFORMATION
  Report Type: Spontaneous
  Country: FR (occurrence: FR)
  Receive Date: 20230113
  Receipt Date: 20230113
  Transmission Date: 20230418
  Serious: Yes (Hospitalization)
  Sender: FDA-Public Use
  Company Number: None

PATIENT
  Age: 81 Year
  Sex: Female
  Weight: 60 kg

DRUGS (3)
  1. AMOXICILLIN [Suspect]
     Active Substance: AMOXICILLIN
     Indication: Dermo-hypodermitis
     Dosage: 3 G, QD (3 CP DE 1 GRAM/JOUR) (1FP)
     Route: 048
     Dates: start: 20210512, end: 20210517
  2. AMOXICILLIN [Suspect]
     Active Substance: AMOXICILLIN
     Indication: Dermo-hypodermitis
     Dosage: 3 G, QD (3 GRAMME PAR JOUR) (1FP)
     Route: 048
     Dates: start: 20201214, end: 20201221
  3. AMOXICILLIN [Suspect]
     Active Substance: AMOXICILLIN
     Indication: Dermo-hypodermitis
     Dosage: 3 G, QD (3 GRAMME PAR JOUR) (1FP)
     Route: 048
     Dates: start: 20210510, end: 20210511

REACTIONS (1)
  - Clostridium difficile colitis [Recovered/Resolved]

NARRATIVE: CASE EVENT DATE: 20210902
